FAERS Safety Report 4652332-X (Version None)
Quarter: 2005Q2

REPORT INFORMATION
  Report Type: 
  Country: None (occurrence: None)
  Receive Date: 20050504
  Receipt Date: 20050428
  Transmission Date: 20051028
  Serious: Yes (Hospitalization)
  Sender: FDA-Public Use
  Company Number: 142

PATIENT
  Age: 61 Year
  Sex: Male
  Weight: 83 kg

DRUGS (4)
  1. MELPHALAN [Suspect]
     Indication: MULTIPLE MYELOMA
     Dosage: 396MG SINGLE DOSE
     Route: 042
     Dates: start: 20041122
  2. THALIDOMIDE [Suspect]
     Dates: start: 20041001, end: 20041108
  3. DEXAMETHASONE [Suspect]
     Dates: start: 20041120, end: 20041123
  4. VELCADE [Suspect]
     Dates: start: 20041020, end: 20041023

REACTIONS (4)
  - DIARRHOEA [None]
  - NAUSEA [None]
  - VOMITING [None]
  - WEIGHT DECREASED [None]
